FAERS Safety Report 5594656-8 (Version None)
Quarter: 2008Q1

REPORT INFORMATION
  Report Type: 
  Country: None (occurrence: None)
  Receive Date: 20080117
  Receipt Date: 20080114
  Transmission Date: 20080703
  Serious: Yes (Hospitalization, Other)
  Sender: FDA-Public Use
  Company Number: FRWYE231028AUG07

PATIENT
  Sex: Female
  Weight: 54 kg

DRUGS (12)
  1. RAPAMUNE [Suspect]
     Indication: PROPHYLAXIS AGAINST TRANSPLANT REJECTION
     Route: 048
     Dates: start: 20021101, end: 20070828
  2. RAPAMUNE [Suspect]
     Indication: ACTINIC KERATOSIS
  3. LASIX [Concomitant]
     Dosage: 120 MG TOTAL DAILY
     Route: 048
     Dates: start: 20070220, end: 20070701
  4. LASIX [Concomitant]
     Dosage: 250 MG IN THE MORNING AND 125 MG IN THE EVENING, EVERY DAY
     Route: 048
     Dates: start: 20070801
  5. COZAAR [Concomitant]
     Dosage: 50 MG TOTAL DAILY
     Route: 048
     Dates: start: 20060115
  6. TAVANIC [Concomitant]
     Dates: end: 20070723
  7. MOPRAL [Concomitant]
     Route: 048
     Dates: start: 20021106
  8. ARANESP [Concomitant]
     Dosage: 40 UG (FREQUENCY UNKNOWN)
     Route: 058
     Dates: start: 20070220
  9. LEXOMIL [Concomitant]
     Route: 048
  10. VEINAMITOL [Concomitant]
     Route: 048
  11. MYFORTIC [Concomitant]
     Indication: PROPHYLAXIS AGAINST TRANSPLANT REJECTION
     Route: 048
     Dates: start: 20070220
  12. TAHOR [Concomitant]
     Route: 048
     Dates: start: 20021104

REACTIONS (10)
  - ASTHENIA [None]
  - BLOOD LACTATE DEHYDROGENASE INCREASED [None]
  - CHRONIC ALLOGRAFT NEPHROPATHY [None]
  - CRYPTOGENIC ORGANISING PNEUMONIA [None]
  - GENERAL PHYSICAL HEALTH DETERIORATION [None]
  - INTERSTITIAL LUNG DISEASE [None]
  - LEFT VENTRICULAR FAILURE [None]
  - SYSTEMIC INFLAMMATORY RESPONSE SYNDROME [None]
  - TREMOR [None]
  - WEIGHT DECREASED [None]
